FAERS Safety Report 6347403-6 (Version None)
Quarter: 2009Q3

REPORT INFORMATION
  Report Type: 
  Country: None (occurrence: None)
  Receive Date: 20090910
  Receipt Date: 20090901
  Transmission Date: 20100115
  Serious: Yes (Other)
  Sender: FDA-Public Use
  Company Number: DE-ASTRAZENECA-2009SE11455

PATIENT
  Age: 61 Year
  Sex: Male

DRUGS (1)
  1. ATACAND HCT [Suspect]
     Dosage: 16 + 12.5 MG
     Route: 048

REACTIONS (2)
  - HEPATITIS [None]
  - TRANSAMINASES INCREASED [None]
